FAERS Safety Report 16540848 (Version 1)
Quarter: 2019Q3

REPORT INFORMATION
  Report Type: Spontaneous
  Country: US (occurrence: US)
  Receive Date: 20190708
  Receipt Date: 20190708
  Transmission Date: 20191004
  Serious: No
  Sender: FDA-Public Use
  Company Number: US-SA-2019SA182274

PATIENT

DRUGS (12)
  1. LASIX [Suspect]
     Active Substance: FUROSEMIDE
     Dosage: UNK UNK, UNK
     Route: 065
  2. IBUPROFEN. [Suspect]
     Active Substance: IBUPROFEN
     Dosage: UNK UNK, UNK
     Route: 065
  3. LOSARTAN POTASSIUM. [Suspect]
     Active Substance: LOSARTAN POTASSIUM
     Dosage: UNK UNK, UNK
     Route: 065
  4. LIPITOR [Suspect]
     Active Substance: ATORVASTATIN CALCIUM
     Dosage: UNK UNK, UNK
  5. SULFA [SULFADIAZINE] [Suspect]
     Active Substance: SULFADIAZINE
     Dosage: UNK UNK, UNK
  6. PIOGLITAZONE HYDROCHLORIDE. [Suspect]
     Active Substance: PIOGLITAZONE HYDROCHLORIDE
     Dosage: UNK UNK, UNK
     Route: 065
  7. BYDUREON [Suspect]
     Active Substance: EXENATIDE
     Dosage: UNK UNK, UNK
     Route: 065
  8. GLYBURIDE. [Suspect]
     Active Substance: GLYBURIDE
     Dosage: UNK UNK, UNK
  9. TOPROL XL [Suspect]
     Active Substance: METOPROLOL SUCCINATE
     Dosage: UNK UNK, UNK
     Route: 065
  10. AMARYL [Suspect]
     Active Substance: GLIMEPIRIDE
     Dosage: UNK UNK, UNK
     Route: 065
  11. METFORMIN HCL [Suspect]
     Active Substance: METFORMIN HYDROCHLORIDE
     Dosage: UNK UNK, UNK
     Route: 065
  12. TRULICITY [Suspect]
     Active Substance: DULAGLUTIDE
     Dosage: UNK UNK, UNK

REACTIONS (8)
  - Nodule [Unknown]
  - Drug hypersensitivity [Unknown]
  - Rash [Unknown]
  - Abdominal discomfort [Unknown]
  - Weight increased [Unknown]
  - Dizziness [Unknown]
  - Myalgia [Unknown]
  - Headache [Unknown]
